FAERS Safety Report 5195173-X (Version None)
Quarter: 2006Q4

REPORT INFORMATION
  Report Type: 
  Country: None (occurrence: None)
  Receive Date: 20061229
  Receipt Date: 20060518
  Transmission Date: 20070319
  Serious: Yes (Other)
  Sender: FDA-Public Use
  Company Number: US-PFIZER INC-2006066762

PATIENT
  Sex: Male

DRUGS (2)
  1. NEURONTIN [Suspect]
     Indication: PAIN
     Dosage: DAILY DOSE:100MG
     Route: 048
  2. CARBON MONOXIDE [Suspect]
     Indication: SUICIDE ATTEMPT
     Route: 055
     Dates: start: 20030507, end: 20030507

REACTIONS (3)
  - BLOOD CARBON MONOXIDE [None]
  - DRUG INEFFECTIVE [None]
  - SUICIDE ATTEMPT [None]
